FAERS Safety Report 12638990 (Version 2)
Quarter: 2016Q3

REPORT INFORMATION
  Report Type: Spontaneous
  Country: US (occurrence: US)
  Receive Date: 20160809
  Receipt Date: 20160809
  Transmission Date: 20161109
  Serious: Yes (Other)
  Sender: FDA-Public Use
  Company Number: US-TEVA-681750USA

PATIENT
  Sex: Female

DRUGS (1)
  1. DIAMOX SEQUELS [Suspect]
     Active Substance: ACETAZOLAMIDE
     Indication: INTRACRANIAL PRESSURE INCREASED
     Dates: start: 2016

REACTIONS (9)
  - Abdominal discomfort [Unknown]
  - Burning sensation [Unknown]
  - Diarrhoea [Unknown]
  - Coeliac disease [Unknown]
  - Hypokalaemia [Unknown]
  - Flatulence [Unknown]
  - Bone pain [Unknown]
  - Acidosis [Unknown]
  - Product use issue [Unknown]

NARRATIVE: CASE EVENT DATE: 2016
